FAERS Safety Report 7218125-4 (Version None)
Quarter: 2011Q1

REPORT INFORMATION
  Report Type: 
  Country: None (occurrence: None)
  Receive Date: 20110110
  Receipt Date: 20101229
  Transmission Date: 20110831
  Serious: Yes (Other)
  Sender: FDA-Public Use
  Company Number: IT-ELI_LILLY_AND_COMPANY-IT201011001402

PATIENT
  Sex: Female

DRUGS (7)
  1. CHOLECALCIFEROL [Concomitant]
     Dosage: 1000 IU/ML, 5 DROPS, UNK
     Route: 048
  2. LANSOPRAZOLE [Concomitant]
     Dosage: 30 MG, UNKNOWN
     Route: 048
  3. CARDURA [Concomitant]
     Dosage: UNK, UNKNOWN
     Route: 048
  4. FORTEO [Suspect]
     Indication: OSTEOPOROSIS
     Dosage: 20 UG, DAILY (1/D)
     Route: 058
     Dates: start: 20091106, end: 20100730
  5. DILATREND [Concomitant]
     Dosage: 25 MG, UNKNOWN
     Route: 048
  6. FRONTAL [Concomitant]
     Dosage: 0.25 MG, UNKNOWN
     Route: 048
  7. CACIT [Concomitant]
     Dosage: 500 MG, UNKNOWN
     Route: 048

REACTIONS (1)
  - REFRACTORY ANAEMIA WITH RINGED SIDEROBLASTS [None]
